FAERS Safety Report 8769518 (Version 3)
Quarter: 2012Q4

REPORT INFORMATION
  Report Type: 
  Country: US (occurrence: US)
  Receive Date: 20120904
  Receipt Date: 20121106
  Transmission Date: 20130627
  Serious: No
  Sender: FDA-Public Use
  Company Number: US-PFIZER INC-2011068628

PATIENT
  Age: 95 Year
  Sex: Female
  Weight: 48.9 kg

DRUGS (9)
  1. PREMARIN [Suspect]
     Indication: HOT FLUSHES
     Dosage: 0.625 mg, daily
     Route: 048
     Dates: start: 1960
  2. PREMARIN [Suspect]
     Dosage: 0.625 mg, 2x/week
     Route: 048
  3. PREMARIN [Suspect]
     Dosage: 0.625 mg, 1x/day
     Route: 048
  4. CELEBREX [Suspect]
     Indication: ARTHRITIS
     Dosage: 200 mg, 1x/day
     Route: 048
     Dates: start: 2009
  5. CELEBREX [Suspect]
     Indication: POLYMYOSITIS
     Dosage: 200 mg, 1x/day
     Route: 048
  6. CELEBREX [Suspect]
     Indication: PAIN IN ARM
  7. CELEBREX [Suspect]
     Indication: PAIN IN LEG
  8. LIPITOR [Suspect]
     Dosage: UNK
  9. VITAMIN B12 [Concomitant]
     Indication: ANEMIA
     Dosage: 500 mg, monthly

REACTIONS (9)
  - Inappropriate schedule of drug administration [Unknown]
  - Hot flush [Not Recovered/Not Resolved]
  - Oropharyngeal pain [Not Recovered/Not Resolved]
  - Asthenia [Unknown]
  - Lethargy [Unknown]
  - Headache [Unknown]
  - Stress [Not Recovered/Not Resolved]
  - Weight decreased [Not Recovered/Not Resolved]
  - Myalgia [Unknown]
